FAERS Safety Report 5144175-8 (Version None)
Quarter: 2006Q4

REPORT INFORMATION
  Report Type: 
  Country: None (occurrence: None)
  Receive Date: 20061102
  Receipt Date: 20061102
  Transmission Date: 20070319
  Serious: Yes (Life-Threatening, Disabling, Other)
  Sender: FDA-Public Use
  Company Number: None

PATIENT
  Age: 35 Year
  Sex: Female
  Weight: 58.9676 kg

DRUGS (1)
  1. DEPO-MEDROL [Suspect]
     Indication: RASH
     Dosage: SMALLEST DOSE    1 TIME    IM
     Route: 030
     Dates: start: 20050208, end: 20050208

REACTIONS (3)
  - DYSPNOEA [None]
  - SWELLING FACE [None]
  - URTICARIA GENERALISED [None]
